FAERS Safety Report 6917519-1 (Version None)
Quarter: 2010Q3

REPORT INFORMATION
  Report Type: 
  Country: None (occurrence: None)
  Receive Date: 20100810
  Receipt Date: 20100728
  Transmission Date: 20110219
  Serious: Yes (Hospitalization)
  Sender: FDA-Public Use
  Company Number: JP-TEVA-243832ISR

PATIENT
  Sex: Male

DRUGS (4)
  1. CISPLATIN [Suspect]
     Indication: GASTRIC CANCER
     Route: 042
     Dates: start: 20100108, end: 20100630
  2. TS-1 (STUDY DRUG) [Suspect]
     Indication: GASTRIC CANCER
     Route: 048
     Dates: start: 20100108, end: 20100718
  3. LANSOPRAZOLE [Concomitant]
     Dates: start: 20100112, end: 20100727
  4. SUNITINIB MALATE [Suspect]
     Indication: GASTRIC CANCER
     Route: 048
     Dates: start: 20100107, end: 20100713

REACTIONS (1)
  - GASTROINTESTINAL HAEMORRHAGE [None]
